FAERS Safety Report 10524180 (Version 1)
Quarter: 2014Q4

REPORT INFORMATION
  Report Type: Spontaneous
  Country: US (occurrence: None)
  Receive Date: 20141015
  Receipt Date: 20141015
  Transmission Date: 20150528
  Serious: Yes (Hospitalization)
  Sender: FDA-Public Use
  Company Number: COM-002549

PATIENT
  Age: 34 Year
  Sex: Female
  Weight: 81.65 kg

DRUGS (1)
  1. EPSOM SALT [Suspect]
     Active Substance: MAGNESIUM SULFATE
     Indication: CONSTIPATION
     Dosage: 2 TABLESPOONS
     Dates: start: 20140825

REACTIONS (5)
  - Diarrhoea [None]
  - Eye swelling [None]
  - Menorrhagia [None]
  - Accidental overdose [None]
  - Feeling abnormal [None]

NARRATIVE: CASE EVENT DATE: 20140825
